FAERS Safety Report 20087570 (Version 5)
Quarter: 2022Q4

REPORT INFORMATION
  Report Type: Report from Study
  Country: NL (occurrence: NL)
  Receive Date: 20211118
  Receipt Date: 20221128
  Transmission Date: 20230113
  Serious: Yes (Life-Threatening, Hospitalization, Other)
  Sender: FDA-Public Use
  Company Number: NL-002147023-NVSC2021NL248586

PATIENT
  Age: 74 Year
  Sex: Male

DRUGS (7)
  1. CYTARABINE [Suspect]
     Active Substance: CYTARABINE
     Indication: Acute myeloid leukaemia
     Dosage: 350 MG
     Route: 065
     Dates: start: 20211006, end: 20211012
  2. DAUNORUBICIN [Suspect]
     Active Substance: DAUNORUBICIN
     Indication: Acute myeloid leukaemia
     Dosage: 105 MG
     Route: 065
     Dates: start: 20211006, end: 20211008
  3. RYDAPT [Suspect]
     Active Substance: MIDOSTAURIN
     Indication: Acute myeloid leukaemia
     Dosage: 50 MG
     Route: 065
     Dates: start: 20211013, end: 20211022
  4. RYDAPT [Suspect]
     Active Substance: MIDOSTAURIN
     Dosage: 100 MG
     Route: 065
     Dates: start: 20211013, end: 20211022
  5. SIMVASTATIN [Concomitant]
     Active Substance: SIMVASTATIN
     Indication: Product used for unknown indication
  6. ASPIRIN CALCIUM [Concomitant]
     Active Substance: ASPIRIN CALCIUM
     Indication: Product used for unknown indication
  7. EZETIMIBE [Concomitant]
     Active Substance: EZETIMIBE
     Indication: Product used for unknown indication

REACTIONS (8)
  - Respiratory failure [Recovered/Resolved]
  - Pneumocystis jirovecii pneumonia [Not Recovered/Not Resolved]
  - Ejection fraction decreased [Recovering/Resolving]
  - Aspergillus infection [Not Recovered/Not Resolved]
  - Blood bilirubin increased [Not Recovered/Not Resolved]
  - White blood cell count decreased [Not Recovered/Not Resolved]
  - Pulmonary haemorrhage [Recovered/Resolved]
  - Pyrexia [Recovered/Resolved]

NARRATIVE: CASE EVENT DATE: 20211021
